FAERS Safety Report 7680516-5 (Version None)
Quarter: 2011Q3

REPORT INFORMATION
  Report Type: 
  Country: None (occurrence: None)
  Receive Date: 20110812
  Receipt Date: 20110801
  Transmission Date: 20111222
  Serious: Yes (Hospitalization)
  Sender: FDA-Public Use
  Company Number: US-JNJFOC-20081202545

PATIENT
  Sex: Female
  Weight: 40.4 kg

DRUGS (4)
  1. PREDNISONE [Concomitant]
  2. REMICADE [Suspect]
     Route: 042
     Dates: start: 20050812
  3. REMICADE [Suspect]
     Route: 042
     Dates: start: 20071006
  4. REMICADE [Suspect]
     Indication: INFLAMMATORY BOWEL DISEASE
     Route: 042
     Dates: start: 20070920

REACTIONS (1)
  - ABDOMINAL PAIN [None]
